FAERS Safety Report 10178809 (Version 4)
Quarter: 2014Q2

REPORT INFORMATION
  Report Type: Spontaneous
  Country: BR (occurrence: BR)
  Receive Date: 20140519
  Receipt Date: 20140630
  Transmission Date: 20141212
  Serious: Yes (Hospitalization, Other)
  Sender: FDA-Public Use
  Company Number: BR-SA-2014SA053561

PATIENT
  Age: 54 Year
  Sex: Female

DRUGS (9)
  1. LANTUS SOLOSTAR [Suspect]
     Indication: PRODUCT USED FOR UNKNOWN INDICATION
     Route: 058
  2. LANTUS SOLOSTAR [Suspect]
     Indication: PRODUCT USED FOR UNKNOWN INDICATION
     Dosage: DRUG OMISSION FOR 5 DAYS
     Route: 058
     Dates: start: 201402
  3. LANTUS SOLOSTAR [Suspect]
     Indication: PRODUCT USED FOR UNKNOWN INDICATION
     Route: 058
  4. SOLOSTAR [Concomitant]
  5. GALVUS MET [Concomitant]
     Indication: DIABETES MELLITUS
     Dosage: 1000/500 MG
  6. DIAMICRON [Concomitant]
     Indication: DIABETES MELLITUS
     Dosage: 60 MG
  7. TRAMAL [Concomitant]
     Indication: SPINAL DISORDER
     Dosage: 50 MG
     Dates: start: 2012
  8. DIOVAN [Concomitant]
     Indication: HYPERTENSION
     Dosage: 160 MG
  9. BYETTA [Concomitant]
     Indication: DIABETES MELLITUS

REACTIONS (16)
  - Gastric infection [Recovered/Resolved]
  - Abdominal pain upper [Recovered/Resolved]
  - Dyspepsia [Recovered/Resolved]
  - Nausea [Recovered/Resolved]
  - Ileus paralytic [Recovering/Resolving]
  - Neurogenic bladder [Recovering/Resolving]
  - Viral infection [Recovering/Resolving]
  - Gait disturbance [Recovering/Resolving]
  - Dysuria [Recovering/Resolving]
  - Nasopharyngitis [Recovered/Resolved]
  - Application site pain [Not Recovered/Not Resolved]
  - Drug administration error [Unknown]
  - Pruritus [Recovered/Resolved]
  - Blood glucose increased [Not Recovered/Not Resolved]
  - Drug ineffective [Unknown]
  - Drug dose omission [Unknown]
